FAERS Safety Report 17433086 (Version 1)
Quarter: 2020Q1

REPORT INFORMATION
  Report Type: Spontaneous
  Country: DK (occurrence: DK)
  Receive Date: 20200219
  Receipt Date: 20200219
  Transmission Date: 20200409
  Serious: Yes (Hospitalization, Other)
  Sender: FDA-Public Use
  Company Number: DK-TEVA-2020-DK-1187690

PATIENT
  Age: 30 Year
  Sex: Female

DRUGS (2)
  1. OLANZAPINE. [Suspect]
     Active Substance: OLANZAPINE
     Indication: SCHIZOAFFECTIVE DISORDER
     Dosage: 10 MG
     Route: 048
     Dates: start: 2014, end: 201701
  2. SERTRALINE [Suspect]
     Active Substance: SERTRALINE HYDROCHLORIDE
     Indication: SCHIZOAFFECTIVE DISORDER
     Dosage: 100 MG
     Route: 048
     Dates: start: 2014, end: 201701

REACTIONS (10)
  - Palpitations [Unknown]
  - Suicide attempt [Recovered/Resolved]
  - Weight increased [Unknown]
  - Anxiety [Unknown]
  - Hepatic failure [Recovered/Resolved]
  - Renal failure [Recovered/Resolved]
  - Suicide attempt [Recovered/Resolved]
  - Vital functions abnormal [Unknown]
  - Suicidal ideation [Recovered/Resolved]
  - Hepatic enzyme increased [Recovered/Resolved]

NARRATIVE: CASE EVENT DATE: 2015
